FAERS Safety Report 15822439 (Version 1)
Quarter: 2019Q1

REPORT INFORMATION
  Report Type: Report from Study
  Country: None (occurrence: US)
  Receive Date: 20190114
  Receipt Date: 20190114
  Transmission Date: 20190417
  Serious: Yes (Other)
  Sender: FDA-Public Use
  Company Number: US-ABBVIE-18K-163-2585127-00

PATIENT
  Age: 51 Year
  Sex: Female

DRUGS (1)
  1. HUMIRA [Suspect]
     Active Substance: ADALIMUMAB
     Indication: PSORIATIC ARTHROPATHY
     Route: 058
     Dates: start: 20180228

REACTIONS (4)
  - Drug ineffective [Not Recovered/Not Resolved]
  - Limb injury [Not Recovered/Not Resolved]
  - Arthralgia [Not Recovered/Not Resolved]
  - Psoriasis [Unknown]

NARRATIVE: CASE EVENT DATE: 2018
